FAERS Safety Report 10483157 (Version 4)
Quarter: 2018Q2

REPORT INFORMATION
  Report Type: Report from Study
  Country: US (occurrence: US)
  Receive Date: 20140930
  Receipt Date: 20180607
  Transmission Date: 20180711
  Serious: Yes (Hospitalization, Other)
  Sender: FDA-Public Use
  Company Number: US-ROCHE-1421432

PATIENT
  Sex: Male
  Weight: 97.07 kg

DRUGS (15)
  1. NUTROPIN AQ [Suspect]
     Active Substance: SOMATROPIN
     Indication: GROWTH HORMONE DEFICIENCY
     Route: 058
     Dates: start: 20060724
  2. DEPO-TESTOSTERONE [Concomitant]
     Active Substance: TESTOSTERONE CYPIONATE
     Route: 065
  3. LEVOXYL [Concomitant]
     Active Substance: LEVOTHYROXINE SODIUM
     Route: 065
  4. VALIUM [Suspect]
     Active Substance: DIAZEPAM
     Indication: PRODUCT USED FOR UNKNOWN INDICATION
     Route: 065
  5. SYNTHROID [Concomitant]
     Active Substance: LEVOTHYROXINE SODIUM
     Route: 065
  6. DEPO-TESTOSTERONE [Concomitant]
     Active Substance: TESTOSTERONE CYPIONATE
     Route: 065
  7. OMEPRAZOLE. [Concomitant]
     Active Substance: OMEPRAZOLE
     Route: 065
  8. CORTEF [Concomitant]
     Active Substance: HYDROCORTISONE
     Route: 065
  9. FLORINEF ACETATE [Concomitant]
     Active Substance: FLUDROCORTISONE ACETATE
  10. CORTEF [Concomitant]
     Active Substance: HYDROCORTISONE
     Route: 065
  11. HYDROCORTISONE. [Concomitant]
     Active Substance: HYDROCORTISONE
     Route: 065
     Dates: start: 2010
  12. NUTROPIN AQ [Suspect]
     Active Substance: SOMATROPIN
     Indication: HYPOPITUITARISM
     Route: 058
  13. NUTROPIN AQ [Suspect]
     Active Substance: SOMATROPIN
     Route: 058
     Dates: start: 2007
  14. DEPO-TESTOSTERONE [Concomitant]
     Active Substance: TESTOSTERONE CYPIONATE
     Route: 065
  15. HYDROCORTISONE. [Concomitant]
     Active Substance: HYDROCORTISONE
     Route: 065
     Dates: start: 2010

REACTIONS (24)
  - Asthenia [Unknown]
  - Headache [Unknown]
  - Mean cell haemoglobin concentration decreased [Unknown]
  - Polycythaemia [Unknown]
  - Road traffic accident [Unknown]
  - Medication error [Unknown]
  - Haematocrit increased [Unknown]
  - Blood thyroid stimulating hormone decreased [Unknown]
  - Anaphylactic reaction [Unknown]
  - Lethargy [Unknown]
  - Fatigue [Unknown]
  - Dizziness [Unknown]
  - Extra dose administered [Unknown]
  - Blood creatinine increased [Unknown]
  - Red blood cell count increased [Unknown]
  - Bone densitometry [Unknown]
  - Hypotension [Unknown]
  - Insulin-like growth factor decreased [Unknown]
  - High density lipoprotein decreased [Unknown]
  - Red cell distribution width increased [Unknown]
  - Glomerular filtration rate decreased [Unknown]
  - Vitamin D deficiency [Unknown]
  - Blood parathyroid hormone increased [Unknown]
  - Weight decreased [Unknown]
